FAERS Safety Report 11213008 (Version 2)
Quarter: 2015Q4

REPORT INFORMATION
  Report Type: Report from Study
  Country: US (occurrence: US)
  Receive Date: 20150623
  Receipt Date: 20151016
  Transmission Date: 20160304
  Serious: Yes (Other)
  Sender: FDA-Public Use
  Company Number: US-ABBVIE-15P-163-1409994-00

PATIENT
  Age: 36 Year
  Sex: Female
  Weight: 96.7 kg

DRUGS (6)
  1. BIOTIN [Concomitant]
     Active Substance: BIOTIN
     Indication: PRODUCT USED FOR UNKNOWN INDICATION
     Dates: start: 201506
  2. LUPRON DEPOT [Suspect]
     Active Substance: LEUPROLIDE ACETATE
     Indication: ENDOMETRIOSIS
     Route: 030
     Dates: start: 200905, end: 200909
  3. LUPRON DEPOT [Suspect]
     Active Substance: LEUPROLIDE ACETATE
     Route: 030
     Dates: start: 20150704
  4. VITAMIN C [Concomitant]
     Active Substance: ASCORBIC ACID
     Indication: VITAMIN SUPPLEMENTATION
     Route: 048
     Dates: start: 2012
  5. VITAMIN E [Concomitant]
     Active Substance: .ALPHA.-TOCOPHEROL
     Indication: VITAMIN SUPPLEMENTATION
     Route: 048
     Dates: start: 2012
  6. VITAMIN C [Concomitant]
     Active Substance: ASCORBIC ACID
     Indication: VITAMIN SUPPLEMENTATION
     Route: 048
     Dates: start: 2009

REACTIONS (12)
  - Adhesion [Recovered/Resolved]
  - Drug dose omission [Recovered/Resolved]
  - Vaginal cyst [Recovering/Resolving]
  - Abdominal distension [Not Recovered/Not Resolved]
  - Mass [Recovered/Resolved]
  - Hot flush [Recovered/Resolved]
  - Pelvic discomfort [Not Recovered/Not Resolved]
  - Uterine leiomyoma [Recovered/Resolved]
  - Endometriosis [Unknown]
  - Vaginal polyp [Recovered/Resolved]
  - Endometriosis [Not Recovered/Not Resolved]
  - Pityriasis lichenoides et varioliformis acuta [Not Recovered/Not Resolved]

NARRATIVE: CASE EVENT DATE: 2009
